FAERS Safety Report 18988290 (Version 1)
Quarter: 2021Q1

REPORT INFORMATION
  Report Type: Spontaneous
  Country: US (occurrence: US)
  Receive Date: 20210309
  Receipt Date: 20210309
  Transmission Date: 20210420
  Serious: No
  Sender: FDA-Public Use
  Company Number: US-EMD SERONO-9221588

PATIENT
  Sex: Female

DRUGS (1)
  1. MAVENCLAD [Suspect]
     Active Substance: CLADRIBINE
     Indication: MULTIPLE SCLEROSIS
     Dosage: YEAR 1 CYCLE 1 THERAPY
     Dates: start: 202102

REACTIONS (2)
  - Nausea [Unknown]
  - Vertigo positional [Unknown]

NARRATIVE: CASE EVENT DATE: 202102
